APPROVED DRUG PRODUCT: LUVOX CR
Active Ingredient: FLUVOXAMINE MALEATE
Strength: 150MG **Federal Register determination that product was not discontinued or withdrawn for safety or effectiveness reasons**
Dosage Form/Route: CAPSULE, EXTENDED RELEASE;ORAL
Application: N022033 | Product #002
Applicant: JAZZ PHARMACEUTICALS INC
Approved: Feb 28, 2008 | RLD: Yes | RS: No | Type: DISCN